FAERS Safety Report 8843427 (Version 1)
Quarter: 2012Q4

REPORT INFORMATION
  Report Type: 
  Country: CA (occurrence: CA)
  Receive Date: 20121016
  Receipt Date: 20121016
  Transmission Date: 20130627
  Serious: Yes (Hospitalization)
  Sender: FDA-Public Use
  Company Number: CA-MYLANLABS-2012S1020639

PATIENT
  Age: 31 Year
  Sex: Male

DRUGS (1)
  1. GEN-CLOZAPINE [Suspect]

REACTIONS (1)
  - Hospitalisation [Recovered/Resolved]
